FAERS Safety Report 8780469 (Version 1)
Quarter: 2012Q4

REPORT INFORMATION
  Report Type: Spontaneous
  Country: US (occurrence: None)
  Receive Date: 20120906
  Receipt Date: 20120906
  Transmission Date: 20130627
  Serious: No
  Sender: FDA-Public Use
  Company Number: None

PATIENT
  Age: 67 Year
  Sex: Male
  Weight: 76.66 kg

DRUGS (1)
  1. TELAPREVIR [Suspect]
     Indication: CHRONIC HEPATITIS C
     Route: 048

REACTIONS (1)
  - Blood creatinine increased [None]
